FAERS Safety Report 5313313-6 (Version None)
Quarter: 2007Q1

REPORT INFORMATION
  Report Type: 
  Country: None (occurrence: None)
  Receive Date: 20070201
  Receipt Date: 20061205
  Transmission Date: 20070707
  Serious: Yes (Hospitalization)
  Sender: FDA-Public Use
  Company Number: 06P-163-0352750-00

PATIENT
  Sex: 0

DRUGS (1)
  1. DEPACON [Suspect]

REACTIONS (1)
  - PLATELET COUNT DECREASED [None]
